FAERS Safety Report 5823749-2 (Version None)
Quarter: 2008Q3

REPORT INFORMATION
  Report Type: 
  Country: None (occurrence: None)
  Receive Date: 20080725
  Receipt Date: 20080713
  Transmission Date: 20090109
  Serious: Yes (Death)
  Sender: FDA-Public Use
  Company Number: PH-PFIZER INC-2008059014

PATIENT
  Age: 85 Year
  Sex: Female

DRUGS (2)
  1. ERAXIS [Suspect]
  2. ZYVOX [Suspect]

REACTIONS (1)
  - DEATH [None]
